FAERS Safety Report 22115571 (Version 1)
Quarter: 2023Q1

REPORT INFORMATION
  Report Type: Spontaneous
  Country: ES (occurrence: ES)
  Receive Date: 20230320
  Receipt Date: 20230320
  Transmission Date: 20230417
  Serious: Yes (Hospitalization)
  Sender: FDA-Public Use
  Company Number: ES-AFP-TODA-S-010

PATIENT
  Age: 64 Year
  Sex: Male

DRUGS (2)
  1. EPINEPHRINE [Suspect]
     Active Substance: EPINEPHRINE
     Indication: Anaphylactic shock
     Dosage: ADMINISTERED ADRENALINE (BY THE DOCTOR AT THE GYM)
     Route: 065
     Dates: start: 20230213, end: 20230213
  2. CYTISINICLINE [Suspect]
     Active Substance: CYTISINICLINE
     Indication: Smoking cessation therapy
     Dosage: 1.5 MILLIGRAM (THE PATIENT TOOK ONLY 1 TABLET)
     Route: 048
     Dates: start: 20230213, end: 20230213

REACTIONS (1)
  - Myocardial infarction [Recovered/Resolved]

NARRATIVE: CASE EVENT DATE: 20230213
